FAERS Safety Report 8621309-1 (Version None)
Quarter: 2012Q3

REPORT INFORMATION
  Report Type: 
  Country: None (occurrence: None)
  Receive Date: 20120824
  Receipt Date: 20120821
  Transmission Date: 20120928
  Serious: Yes (Hospitalization)
  Sender: FDA-Public Use
  Company Number: JP-AMGEN-JPNCT2012050163

PATIENT
  Age: 47 Year
  Sex: Female

DRUGS (13)
  1. DECADRON PHOSPHATE [Concomitant]
     Indication: PREMEDICATION
     Dosage: UNK
     Dates: start: 20110606, end: 20110629
  2. LEVOTHYROXINE SODIUM [Concomitant]
     Indication: AUTOIMMUNE THYROIDITIS
     Dosage: 50 MG, BID
     Route: 048
     Dates: start: 19960101
  3. FLUOROMETHOLONE [Concomitant]
     Indication: CONJUNCTIVITIS ALLERGIC
     Dosage: UNK
     Route: 031
     Dates: start: 20110101
  4. MAGMITT [Concomitant]
     Indication: CONSTIPATION PROPHYLAXIS
     Dosage: 330 MG, UNK
     Route: 048
     Dates: start: 20110627
  5. BETAMETHASONE SODIUM PHOSPHATE [Concomitant]
     Indication: PRURITUS
  6. HACHIAZULE [Concomitant]
     Indication: STOMATITIS
     Dosage: UNK UNK, QID
     Route: 049
     Dates: start: 20110613
  7. LYRICA [Concomitant]
     Indication: ARTHRALGIA
     Dosage: 75 MG, UNK
     Route: 048
     Dates: start: 20110701
  8. PEGFILGRASTIM [Suspect]
     Indication: CHEMOTHERAPY
     Dosage: 3.6 MG, UNK
     Route: 058
     Dates: start: 20110607
  9. BETAMETHASONE SODIUM PHOSPHATE [Concomitant]
     Indication: HEAT RASH
     Dosage: UNK UNK, BID
     Route: 061
     Dates: start: 20120701
  10. TAXOTERE [Concomitant]
     Indication: BREAST CANCER
     Dosage: 75 MG/M2, UNK
     Route: 041
     Dates: start: 20110606
  11. CYCLOPHOSPHAMIDE [Concomitant]
     Indication: BREAST CANCER
     Dosage: 600 MG/M2, UNK
     Route: 041
     Dates: start: 20110606
  12. KYTRIL [Concomitant]
     Indication: PREMEDICATION
     Dosage: 3 MG, UNK
     Route: 042
     Dates: start: 20110606, end: 20110627
  13. LEVOFLOXACIN [Concomitant]
     Indication: CONJUNCTIVITIS ALLERGIC
     Dosage: UNK
     Route: 031
     Dates: start: 20110101

REACTIONS (1)
  - URTICARIA [None]
